FAERS Safety Report 8618479 (Version 3)
Quarter: 2014Q1

REPORT INFORMATION
  Report Type: Spontaneous
  Country: US (occurrence: US)
  Receive Date: 20120618
  Receipt Date: 20140108
  Transmission Date: 20141002
  Serious: Yes (Hospitalization, Other)
  Sender: FDA-Public Use
  Company Number: US-ASTRAZENECA-2012SE36378

PATIENT
  Age: 573 Month
  Sex: Male

DRUGS (13)
  1. NEXIUM [Suspect]
     Indication: DYSPEPSIA
     Dosage: 3 TIMES DAILY
     Route: 048
     Dates: start: 2002, end: 2006
  2. NEXIUM [Suspect]
     Indication: GASTROOESOPHAGEAL REFLUX DISEASE
     Dosage: 3 TIMES DAILY
     Route: 048
     Dates: start: 2002, end: 2006
  3. PRILOSEC [Suspect]
     Route: 048
  4. PREVACID [Concomitant]
  5. ZANTAC [Concomitant]
  6. TAGAMET [Concomitant]
  7. PEPCID [Concomitant]
  8. TUMS [Concomitant]
  9. ALKA SELZER [Concomitant]
  10. PEPTO BISMOL [Concomitant]
  11. PHENERGAN [Concomitant]
  12. CLONIDINE [Concomitant]
  13. PLAVIX [Concomitant]

REACTIONS (18)
  - Cerebrovascular accident [Unknown]
  - Asthenia [Unknown]
  - Myocardial infarction [Unknown]
  - Chronic obstructive pulmonary disease [Unknown]
  - Cardiac failure congestive [Unknown]
  - Osteoporosis [Unknown]
  - Wrist fracture [Unknown]
  - Multiple fractures [Unknown]
  - Hand fracture [Unknown]
  - Stress [Unknown]
  - Arthritis [Unknown]
  - Bone disorder [Unknown]
  - Androgen deficiency [Unknown]
  - Vitamin D deficiency [Unknown]
  - Fall [Unknown]
  - Upper limb fracture [Unknown]
  - Muscular weakness [Unknown]
  - Depression [Unknown]
